FAERS Safety Report 23607467 (Version 1)
Quarter: 2024Q1

REPORT INFORMATION
  Report Type: Spontaneous
  Country: CN (occurrence: CN)
  Receive Date: 20240307
  Receipt Date: 20240307
  Transmission Date: 20240409
  Serious: Yes (Other)
  Sender: FDA-Public Use
  Company Number: CN-009507513-2403CHN000536

PATIENT
  Age: 82 Year
  Sex: Male

DRUGS (4)
  1. CILASTATIN SODIUM\IMIPENEM [Suspect]
     Active Substance: CILASTATIN SODIUM\IMIPENEM
     Indication: Pneumonia
     Dosage: 0.5 G, Q12H, IV DRIP
     Route: 041
     Dates: start: 20240104, end: 20240104
  2. CILASTATIN SODIUM\IMIPENEM [Suspect]
     Active Substance: CILASTATIN SODIUM\IMIPENEM
     Dosage: 0.5 G, Q8H, IV DRIP, ADMINISTERED TWICE
     Route: 041
     Dates: start: 20240105, end: 20240105
  3. SODIUM CHLORIDE [Suspect]
     Active Substance: SODIUM CHLORIDE
     Indication: Medication dilution
     Dosage: 100 ML, Q8H, IV DRIP, ADMINISTERED TWICE
     Route: 041
     Dates: start: 20240105, end: 20240105
  4. SODIUM CHLORIDE [Concomitant]
     Active Substance: SODIUM CHLORIDE
     Dosage: 100 ML, Q12H, IV DRIP
     Route: 041
     Dates: start: 20240104, end: 20240104

REACTIONS (3)
  - Epilepsy [Recovering/Resolving]
  - Vascular encephalopathy [Unknown]
  - Cerebral infarction [Unknown]

NARRATIVE: CASE EVENT DATE: 20240105
